FAERS Safety Report 8348786-8 (Version None)
Quarter: 2012Q2

REPORT INFORMATION
  Report Type: 
  Country: None (occurrence: None)
  Receive Date: 20120508
  Receipt Date: 20120424
  Transmission Date: 20120825
  Serious: Yes (Other)
  Sender: FDA-Public Use
  Company Number: JPI-P-017343

PATIENT
  Age: 33 Year
  Sex: Female
  Weight: 76.2043 kg

DRUGS (11)
  1. LEVOTHYROXINE SODIUM [Concomitant]
  2. MIDODRINE HYDROCHLORIDE [Concomitant]
  3. NEBIVOLOL [Concomitant]
  4. DIPHENHYDRAMINE HCL [Concomitant]
  5. XYREM [Suspect]
     Indication: CATAPLEXY
     Dosage: 4.5 GM (2.25 GM, 2 IN 1 D), ORAL 6 GM (3 GM, 2 IN 1 D), ORAL
     Route: 048
     Dates: start: 20110101
  6. XYREM [Suspect]
     Indication: CATAPLEXY
     Dosage: 4.5 GM (2.25 GM, 2 IN 1 D), ORAL 6 GM (3 GM, 2 IN 1 D), ORAL
     Route: 048
     Dates: start: 20110921, end: 20110101
  7. PREGABALIN [Concomitant]
  8. VITAMIN D [Concomitant]
  9. DESVENLAFAXINE [Concomitant]
  10. AMPHETAMINE, DEXTROAMPHETAMINE MIXED SALTS [Concomitant]
  11. ACETAMINOPHEN [Concomitant]

REACTIONS (4)
  - COUGH [None]
  - SOFT TISSUE DISORDER [None]
  - NASOPHARYNGITIS [None]
  - NASAL CONGESTION [None]
